FAERS Safety Report 8406743-7 (Version None)
Quarter: 2012Q2

REPORT INFORMATION
  Report Type: 
  Country: None (occurrence: None)
  Receive Date: 20120604
  Receipt Date: 20120530
  Transmission Date: 20120825
  Serious: Yes (Hospitalization)
  Sender: FDA-Public Use
  Company Number: US-ELI_LILLY_AND_COMPANY-US201205004487

PATIENT
  Sex: Female
  Weight: 99.773 kg

DRUGS (2)
  1. EFFIENT [Suspect]
     Dosage: UNK
     Dates: start: 20120411
  2. ASPIRIN [Concomitant]

REACTIONS (1)
  - ACUTE MYOCARDIAL INFARCTION [None]
